FAERS Safety Report 12709772 (Version 2)
Quarter: 2016Q4

REPORT INFORMATION
  Report Type: Spontaneous
  Country: US (occurrence: US)
  Receive Date: 20160902
  Receipt Date: 20161020
  Transmission Date: 20170207
  Serious: Yes (Other)
  Sender: FDA-Public Use
  Company Number: US-HORIZON-KRY-0004-2016

PATIENT
  Age: 50 Year
  Sex: Male
  Weight: 81.6 kg

DRUGS (1)
  1. KRYSTEXXA [Suspect]
     Active Substance: PEGLOTICASE
     Indication: GOUT
     Dosage: 8 MG/ML EVERY 2 WEEKS
     Route: 042
     Dates: start: 20160812, end: 20160812

REACTIONS (3)
  - Hypoaesthesia oral [Recovered/Resolved]
  - Urticaria [Recovered/Resolved]
  - Throat tightness [Recovered/Resolved]

NARRATIVE: CASE EVENT DATE: 20160812
